FAERS Safety Report 11450696 (Version 1)
Quarter: 2015Q3

REPORT INFORMATION
  Report Type: Spontaneous
  Country: US (occurrence: US)
  Receive Date: 20150903
  Receipt Date: 20150903
  Transmission Date: 20151125
  Serious: No
  Sender: FDA-Public Use
  Company Number: US-ROCHE-1028945

PATIENT
  Sex: Male

DRUGS (6)
  1. RIBASPHERE RIBAPAK [Suspect]
     Active Substance: RIBAVIRIN
     Indication: CHRONIC HEPATITIS C
     Dosage: DIVIDED DOSES 400/600
     Route: 065
     Dates: start: 20120104
  2. INCIVEK [Suspect]
     Active Substance: TELAPREVIR
     Indication: CHRONIC HEPATITIS C
     Route: 065
     Dates: start: 20120104, end: 20120324
  3. PEGASYS [Suspect]
     Active Substance: PEGINTERFERON ALFA-2A
     Dosage: DOSE REDUCED
     Route: 065
     Dates: start: 20120314
  4. RIBASPHERE RIBAPAK [Suspect]
     Active Substance: RIBAVIRIN
     Dosage: DOSE REDUCED
     Route: 065
  5. PEGASYS [Suspect]
     Active Substance: PEGINTERFERON ALFA-2A
     Indication: CHRONIC HEPATITIS C
     Route: 065
     Dates: start: 20120104
  6. PEGASYS [Suspect]
     Active Substance: PEGINTERFERON ALFA-2A
     Dosage: DOSE REDUCED
     Route: 065

REACTIONS (10)
  - Energy increased [Unknown]
  - Chills [Unknown]
  - Dyspnoea [Unknown]
  - Dry skin [Unknown]
  - Anxiety [Unknown]
  - Rash pruritic [Unknown]
  - Decreased appetite [Unknown]
  - Hyperhidrosis [Unknown]
  - Heart rate increased [Unknown]
  - Bone pain [Unknown]
